FAERS Safety Report 6681701-1 (Version None)
Quarter: 2010Q2

REPORT INFORMATION
  Report Type: 
  Country: None (occurrence: None)
  Receive Date: 20100414
  Receipt Date: 20100405
  Transmission Date: 20101027
  Serious: Yes (Other)
  Sender: FDA-Public Use
  Company Number: PL-PFIZER INC-2010042854

PATIENT
  Age: 43 Year
  Sex: Female

DRUGS (2)
  1. METRONIDAZOLE [Suspect]
     Indication: TOOTH DEPOSIT
  2. METRONIDAZOLE [Suspect]
     Indication: ANTIINFLAMMATORY THERAPY

REACTIONS (3)
  - BURNING SENSATION [None]
  - OEDEMA [None]
  - ORAL ALLERGY SYNDROME [None]
